FAERS Safety Report 8353957-0 (Version None)
Quarter: 2012Q2

REPORT INFORMATION
  Report Type: 
  Country: None (occurrence: None)
  Receive Date: 20120511
  Receipt Date: 20101206
  Transmission Date: 20120825
  Serious: No
  Sender: FDA-Public Use
  Company Number: US-TEVA-2010006308

PATIENT
  Sex: Male
  Weight: 72.64 kg

DRUGS (1)
  1. NUVIGIL [Suspect]
     Indication: SOMNOLENCE
     Dosage: 150 MILLIGRAM;
     Route: 048
     Dates: start: 20101101, end: 20101122

REACTIONS (3)
  - DEPRESSION [None]
  - ANXIETY [None]
  - DRUG INEFFECTIVE FOR UNAPPROVED INDICATION [None]
